FAERS Safety Report 7183350-8 (Version None)
Quarter: 2010Q4

REPORT INFORMATION
  Report Type: 
  Country: None (occurrence: None)
  Receive Date: 20101222
  Receipt Date: 20101203
  Transmission Date: 20110411
  Serious: No
  Sender: FDA-Public Use
  Company Number: US-B.I. PHARMACEUTICALS,INC./RIDGEFIELD-2010-BP-12823BP

PATIENT
  Sex: Female

DRUGS (8)
  1. PRADAXA [Suspect]
     Indication: CEREBROVASCULAR ACCIDENT PROPHYLAXIS
     Dosage: 300 MG
     Route: 048
     Dates: start: 20101114, end: 20101117
  2. FUROSEMIDE [Concomitant]
     Dosage: 80 MG
  3. AMIODARONE [Concomitant]
     Dosage: 200 MG
  4. POTCHLORER [Concomitant]
  5. ZETIA [Concomitant]
     Dosage: 10 MG
  6. LOVASTATIN [Concomitant]
     Dosage: 40 MG
  7. DILTIAZEM [Concomitant]
     Dosage: 240 MG
  8. WARFARIN SODIUM [Concomitant]
     Dosage: 1.5 MG

REACTIONS (2)
  - DYSPEPSIA [None]
  - HEADACHE [None]
